FAERS Safety Report 4356534-1 (Version None)
Quarter: 2004Q2

REPORT INFORMATION
  Report Type: 
  Country: None (occurrence: None)
  Receive Date: 20040507
  Receipt Date: 20040429
  Transmission Date: 20050107
  Serious: Yes (Hospitalization)
  Sender: FDA-Public Use
  Company Number: 2003165423US

PATIENT
  Age: 60 Year
  Sex: Female

DRUGS (1)
  1. BEXTRA [Suspect]
     Dosage: 10 MG, QD, ORAL
     Route: 048

REACTIONS (1)
  - SKIN REACTION [None]
